FAERS Safety Report 8090682-8 (Version None)
Quarter: 2012Q1

REPORT INFORMATION
  Report Type: 
  Country: None (occurrence: None)
  Receive Date: 20120129
  Receipt Date: 20111208
  Transmission Date: 20120608
  Serious: No
  Sender: FDA-Public Use
  Company Number: US-ABBOTT-11P-163-0881983-00

PATIENT
  Age: 37 Year
  Sex: Female

DRUGS (9)
  1. HUMIRA [Suspect]
  2. TRAMADOL HCL [Concomitant]
     Indication: PAIN
     Route: 048
  3. FLEXERIL [Concomitant]
     Indication: MUSCLE SPASMS
     Dosage: AT BEDTIME
     Route: 048
  4. NORCO [Concomitant]
     Indication: PAIN
     Dosage: 10/325MG
  5. NORCO [Concomitant]
     Indication: INSOMNIA
  6. TOPAMAX [Concomitant]
     Indication: HEADACHE
     Route: 048
  7. ALBUTEROL [Concomitant]
     Indication: ASTHMA
  8. CALCIUM VIT D [Concomitant]
     Indication: PRODUCT USED FOR UNKNOWN INDICATION
     Dosage: DAILY
     Route: 048
  9. HUMIRA [Suspect]
     Indication: ANKYLOSING SPONDYLITIS
     Dates: start: 20110219, end: 20110501

REACTIONS (4)
  - PAIN [None]
  - ANAEMIA [None]
  - HEART RATE INCREASED [None]
  - INJECTION SITE MASS [None]
